FAERS Safety Report 5509807-0 (Version None)
Quarter: 2007Q4

REPORT INFORMATION
  Report Type: 
  Country: None (occurrence: None)
  Receive Date: 20071026
  Receipt Date: 20070928
  Transmission Date: 20080405
  Serious: Yes (Hospitalization)
  Sender: FDA-Public Use
  Company Number: CLOF-10687

PATIENT
  Age: 70 Year
  Sex: Male
  Weight: 88.3 kg

DRUGS (7)
  1. CLOFARABINE. MFR: GENZYME [Suspect]
     Indication: MYELODYSPLASTIC SYNDROME
     Dosage: 20 MG/M2 QD X 5 PO
     Route: 048
     Dates: start: 20070919, end: 20070923
  2. BENADRYL [Concomitant]
  3. COLACE [Concomitant]
  4. MAGNESIUM [Concomitant]
  5. OXYCODONE HCL [Concomitant]
  6. ZOFRAN [Concomitant]
  7. AMBIEN [Concomitant]

REACTIONS (2)
  - BACTERIAL INFECTION [None]
  - RENAL FAILURE [None]
